FAERS Safety Report 8831624 (Version 1)
Quarter: 2012Q4

REPORT INFORMATION
  Report Type: 
  Country: US (occurrence: US)
  Receive Date: 20121009
  Receipt Date: 20121009
  Transmission Date: 20130627
  Serious: No
  Sender: FDA-Public Use
  Company Number: US-ASTRAZENECA-2012SE75110

PATIENT
  Age: 53 Year
  Sex: Male
  Weight: 85.3 kg

DRUGS (2)
  1. CRESTOR [Suspect]
     Indication: BLOOD CHOLESTEROL INCREASED
     Route: 048
     Dates: start: 2010, end: 201205
  2. TRAZADONE [Concomitant]
     Indication: INSOMNIA

REACTIONS (6)
  - White blood cell count decreased [Unknown]
  - Anxiety [Unknown]
  - Cognitive disorder [Unknown]
  - Sleep disorder due to general medical condition, insomnia type [Unknown]
  - Memory impairment [Unknown]
  - Drug dose omission [Unknown]
